FAERS Safety Report 21337670 (Version 1)
Quarter: 2022Q3

REPORT INFORMATION
  Report Type: Spontaneous
  Country: US (occurrence: None)
  Receive Date: 20220915
  Receipt Date: 20220915
  Transmission Date: 20221027
  Serious: Yes (Other)
  Sender: FDA-Public Use
  Company Number: None

PATIENT
  Age: 57 Year
  Sex: Female

DRUGS (8)
  1. HUMIRA [Suspect]
     Active Substance: ADALIMUMAB
     Indication: Psoriasis
     Dosage: OTHER FREQUENCY : EVERY OTHER WEEK;?
     Route: 058
     Dates: start: 20210209
  2. WELLBUTRIN [Concomitant]
  3. Multi-vitamin [Concomitant]
  4. Valacyclovir [Concomitant]
  5. TRAZODONE [Concomitant]
  6. CALCIUM [Concomitant]
  7. LEXAPRO [Concomitant]
  8. Motrin [Concomitant]

REACTIONS (3)
  - Injection site extravasation [None]
  - Incorrect dose administered by device [None]
  - Device leakage [None]

NARRATIVE: CASE EVENT DATE: 20220908
